FAERS Safety Report 8023976-2 (Version None)
Quarter: 2012Q1

REPORT INFORMATION
  Report Type: 
  Country: None (occurrence: None)
  Receive Date: 20120105
  Receipt Date: 20120104
  Transmission Date: 20120608
  Serious: Yes (Death, Life-Threatening, Hospitalization)
  Sender: FDA-Public Use
  Company Number: FR-B.I. PHARMACEUTICALS,INC./RIDGEFIELD-2011-FF-00911FF

PATIENT
  Age: 67 Year
  Sex: Male

DRUGS (12)
  1. POTASSIUM CHLORIDE [Concomitant]
     Dates: start: 20110824
  2. SIMVASTATIN [Concomitant]
     Dosage: 20 MG
  3. ACETAMINOPHEN [Concomitant]
     Dates: start: 20110824
  4. BISOPROLOL [Concomitant]
     Dosage: 10 MG
  5. DEPAKENE [Concomitant]
     Dosage: 4 MG
  6. FUROSEMIDE [Concomitant]
     Dosage: 40 MG
     Dates: start: 20110824
  7. PRADAXA [Suspect]
     Indication: ATRIAL FIBRILLATION
     Dosage: 220 MG
     Route: 048
     Dates: start: 20110824
  8. IMOVANE [Concomitant]
     Dates: start: 20110824
  9. VITAMIN B1B6 [Concomitant]
     Dosage: 6 MG
     Dates: start: 20110824
  10. CORDARONE [Concomitant]
     Route: 048
     Dates: start: 20110824
  11. PANTOPRAZOLE SODIUM [Concomitant]
     Dosage: 1 MG
     Dates: start: 20110824
  12. RAMIPRIL [Concomitant]
     Dosage: 5 MG
     Dates: start: 20110824

REACTIONS (4)
  - THROMBOCYTOPENIA [None]
  - ARRHYTHMIA [None]
  - CARDIAC FAILURE [None]
  - ISCHAEMIC STROKE [None]
